FAERS Safety Report 7721336-2 (Version None)
Quarter: 2011Q3

REPORT INFORMATION
  Report Type: 
  Country: None (occurrence: None)
  Receive Date: 20110825
  Receipt Date: 20110812
  Transmission Date: 20111222
  Serious: No
  Sender: FDA-Public Use
  Company Number: 1000022003

PATIENT
  Sex: Male

DRUGS (3)
  1. EPILEM (EPIRUBICIN HYDROCHLORIDE) (TABLETS) (EPIRUBICIN HYDROCHLORIDE) [Concomitant]
  2. LAMOTRIGINE (LAMOTRIGINE) (TABLETS) (LAMOTRIGINE) [Concomitant]
  3. CITALOPRAM HYDROBROMIDE [Suspect]
     Dosage: 60 MG (60 MG,1 IN 1 D) ; 40 MG (40 MG,1 IN 1 D)
     Dates: start: 20080101

REACTIONS (5)
  - MATERNAL EXPOSURE DURING PREGNANCY [None]
  - SPERM ANALYSIS ABNORMAL [None]
  - MISCARRIAGE OF PARTNER [None]
  - SPERMATOZOA PROGRESSIVE MOTILITY DECREASED [None]
  - SPERM CONCENTRATION DECREASED [None]
